FAERS Safety Report 12870279 (Version 3)
Quarter: 2016Q4

REPORT INFORMATION
  Report Type: Spontaneous
  Country: CN (occurrence: CN)
  Receive Date: 20161021
  Receipt Date: 20161202
  Transmission Date: 20170207
  Serious: Yes (Other)
  Sender: FDA-Public Use
  Company Number: CN-GLAXOSMITHKLINE-CN2016GSK152628

PATIENT
  Sex: Male
  Weight: 65 kg

DRUGS (1)
  1. VENTOLIN HFA [Suspect]
     Active Substance: ALBUTEROL SULFATE
     Indication: BRONCHOSPASM
     Dosage: 2 TO 3 SPRAYS 7 TO 8 TIMES DAILY
     Route: 055

REACTIONS (16)
  - Feeling abnormal [Unknown]
  - Fear [Recovered/Resolved]
  - Dyspnoea [Recovered/Resolved]
  - Osteoporosis [Not Recovered/Not Resolved]
  - Wrong technique in product usage process [Unknown]
  - Rhinorrhoea [Recovered/Resolved]
  - Overdose [Unknown]
  - Drug dependence [Not Recovered/Not Resolved]
  - Disease recurrence [Unknown]
  - Product use issue [Unknown]
  - Drug administration error [Unknown]
  - Lacrimation increased [Recovered/Resolved]
  - Asthenia [Recovered/Resolved]
  - Drug ineffective [Unknown]
  - Palpitations [Recovered/Resolved]
  - Cough [Recovered/Resolved]

NARRATIVE: CASE EVENT DATE: 2016
